FAERS Safety Report 9265356 (Version 2)
Quarter: 2013Q2

REPORT INFORMATION
  Report Type: Report from Study
  Country: US (occurrence: US)
  Receive Date: 20130430
  Receipt Date: 20130530
  Transmission Date: 20140414
  Serious: Yes (Life-Threatening, Other)
  Sender: FDA-Public Use
  Company Number: US-RB-019939-10

PATIENT
  Age: 58 Year
  Sex: Male

DRUGS (2)
  1. SUBOXONE TABLET [Suspect]
     Indication: PAIN
     Dosage: 1 AND A HALF TABLET A DAY; UNIT DOSE UNKNOWN
     Route: 060
     Dates: start: 201012, end: 2011
  2. SUBOXONE FILM [Suspect]
     Indication: PAIN
     Dosage: SUBOXONE FILM
     Route: 060
     Dates: start: 2010

REACTIONS (7)
  - Off label use [Not Recovered/Not Resolved]
  - Wrong technique in drug usage process [Recovered/Resolved]
  - Disturbance in attention [Recovered/Resolved]
  - Tachyphrenia [Recovered/Resolved]
  - Insomnia [Recovered/Resolved]
  - Amnesia [Not Recovered/Not Resolved]
  - Hepatic cancer [Not Recovered/Not Resolved]
